FAERS Safety Report 26077933 (Version 1)
Quarter: 2025Q4

REPORT INFORMATION
  Report Type: Spontaneous
  Country: US (occurrence: US)
  Receive Date: 20251122
  Receipt Date: 20251122
  Transmission Date: 20260117
  Serious: No
  Sender: MDD OPERATIONS
  Company Number: US-MDD US Operations-MDD202508-003005

PATIENT
  Age: 68 Year
  Sex: Male

DRUGS (2)
  1. ONAPGO [Suspect]
     Active Substance: APOMORPHINE HYDROCHLORIDE
     Indication: Parkinson^s disease
     Dosage: 1 MG/HR SLOW RATE
     Dates: start: 20250805
  2. ONAPGO [Suspect]
     Active Substance: APOMORPHINE HYDROCHLORIDE
     Dosage: SERIAL NUMBER OF THE PUMP: AJ1196, 4.5 MG PER HOUR EVERY DAY
     Route: 058
     Dates: start: 2025

REACTIONS (3)
  - Taste disorder [Not Recovered/Not Resolved]
  - Dizziness [Recovered/Resolved]
  - Device power source issue [Unknown]

NARRATIVE: CASE EVENT DATE: 20250806
